FAERS Safety Report 8178408-0 (Version None)
Quarter: 2012Q1

REPORT INFORMATION
  Report Type: 
  Country: None (occurrence: None)
  Receive Date: 20120301
  Receipt Date: 20120229
  Transmission Date: 20120608
  Serious: Yes (Other)
  Sender: FDA-Public Use
  Company Number: US-PFIZER INC-2012054460

PATIENT
  Sex: Female

DRUGS (6)
  1. PREMARIN [Concomitant]
     Dosage: UNK
  2. CRESTOR [Concomitant]
     Indication: BLOOD CHOLESTEROL INCREASED
     Dosage: UNK
  3. XANAX [Concomitant]
     Dosage: 0.25 MG, 1X/DAY
  4. PRISTIQ [Suspect]
     Indication: DEPRESSION
     Dosage: 50 MG, 1X/DAY
     Route: 048
     Dates: start: 20120224, end: 20120227
  5. PRISTIQ [Suspect]
     Indication: ANXIETY
  6. SYNTHROID [Concomitant]
     Indication: HYPOTHYROIDISM
     Dosage: UNK

REACTIONS (8)
  - MYDRIASIS [None]
  - DIARRHOEA [None]
  - TETANUS [None]
  - ASTHENIA [None]
  - MYALGIA [None]
  - PARAESTHESIA [None]
  - BACK PAIN [None]
  - NAUSEA [None]
